FAERS Safety Report 15300258 (Version 2)
Quarter: 2018Q3

REPORT INFORMATION
  Report Type: Spontaneous
  Country: NL (occurrence: NL)
  Receive Date: 20180821
  Receipt Date: 20180912
  Transmission Date: 20181010
  Serious: Yes (Other)
  Sender: FDA-Public Use
  Company Number: NL-ASTELLAS-2018US037349

PATIENT
  Age: 7 Year
  Sex: Male
  Weight: 32 kg

DRUGS (3)
  1. CHOLECALCIFEROL [Concomitant]
     Active Substance: CHOLECALCIFEROL
     Indication: PRODUCT USED FOR UNKNOWN INDICATION
     Dosage: UNK UNK, UNKNOWN FREQ.
     Route: 065
  2. AMPHOTERICIN B, LIPOSOME [Suspect]
     Active Substance: AMPHOTERICIN B
     Indication: ANTIFUNGAL PROPHYLAXIS
     Dosage: 80 MG, UNKNOWN FREQ. AT 08:00
     Route: 065
     Dates: start: 20180613
  3. AMPHOTERICIN B, LIPOSOME [Suspect]
     Active Substance: AMPHOTERICIN B
     Dosage: 80 MG, UNKNOWN FREQ. AT 12:00
     Route: 065
     Dates: start: 20180613

REACTIONS (4)
  - Pharyngeal oedema [Recovered/Resolved]
  - Infusion related reaction [Recovered/Resolved]
  - Product preparation error [Unknown]
  - Obstructive airways disorder [Recovered/Resolved]

NARRATIVE: CASE EVENT DATE: 20180613
